FAERS Safety Report 16455424 (Version 1)
Quarter: 2019Q2

REPORT INFORMATION
  Report Type: Spontaneous
  Country: CA (occurrence: CA)
  Receive Date: 20190619
  Receipt Date: 20190619
  Transmission Date: 20190711
  Serious: Yes (Hospitalization)
  Sender: FDA-Public Use
  Company Number: PHHY2019CA136653

PATIENT
  Age: 74 Year
  Sex: Male

DRUGS (3)
  1. METHOTREXATE. [Suspect]
     Active Substance: METHOTREXATE
     Indication: RHEUMATOID ARTHRITIS
     Dosage: UNK
     Route: 065
  2. HYDROXYCHLOROQUINE [Suspect]
     Active Substance: HYDROXYCHLOROQUINE
     Indication: RHEUMATOID ARTHRITIS
     Dosage: UNK
     Route: 065
  3. PREDNISONE. [Suspect]
     Active Substance: PREDNISONE
     Indication: RHEUMATOID ARTHRITIS
     Dosage: 10 MG, QD
     Route: 065

REACTIONS (16)
  - Meningitis noninfective [Unknown]
  - Mental status changes [Unknown]
  - Confusional state [Recovered/Resolved]
  - Aphasia [Recovered/Resolved]
  - Generalised tonic-clonic seizure [Unknown]
  - Resting tremor [Unknown]
  - Hypoaesthesia [Unknown]
  - Postural tremor [Unknown]
  - Neurological symptom [Recovered/Resolved]
  - Hemiparesis [Unknown]
  - Gait disturbance [Unknown]
  - Muscle rigidity [Unknown]
  - Parkinsonism [Unknown]
  - Apathy [Recovered/Resolved]
  - Bradykinesia [Unknown]
  - Disease progression [Unknown]
